FAERS Safety Report 9275886 (Version 1)
Quarter: 2013Q2

REPORT INFORMATION
  Report Type: Spontaneous
  Country: FR (occurrence: FR)
  Receive Date: 20130507
  Receipt Date: 20130507
  Transmission Date: 20140414
  Serious: Yes (Other)
  Sender: FDA-Public Use
  Company Number: FR-009507513-1207FRA006916

PATIENT
  Age: 29 Year
  Sex: Female

DRUGS (4)
  1. SINGULAIR [Suspect]
     Indication: ASTHMA
     Dosage: 10 MG, QD
     Route: 048
     Dates: start: 2010, end: 20120719
  2. AERIUS [Suspect]
     Dosage: UNK
     Route: 048
     Dates: start: 201206, end: 20120719
  3. ATARAX (HYDROXYZINE HYDROCHLORIDE) [Suspect]
     Route: 048
  4. FLIXOTIDE [Suspect]
     Route: 055

REACTIONS (2)
  - Exposure during pregnancy [Recovered/Resolved]
  - Premature delivery [Recovered/Resolved]
